FAERS Safety Report 6656196-4 (Version None)
Quarter: 2010Q1

REPORT INFORMATION
  Report Type: 
  Country: None (occurrence: None)
  Receive Date: 20100326
  Receipt Date: 20100326
  Transmission Date: 20100710
  Serious: Yes (Death)
  Sender: FDA-Public Use
  Company Number: None

PATIENT

DRUGS (1)
  1. BUPROPION HCL [Suspect]
     Dosage: 450 MG DAILY MOUTH; 300 MG DAILY MOUTH
     Route: 048
     Dates: start: 20060803

REACTIONS (6)
  - CONDITION AGGRAVATED [None]
  - DEPRESSION [None]
  - DRUG DEPENDENCE [None]
  - IRRITABILITY [None]
  - PRODUCT QUALITY ISSUE [None]
  - THERAPEUTIC RESPONSE DECREASED [None]
